FAERS Safety Report 18551448 (Version 3)
Quarter: 2021Q2

REPORT INFORMATION
  Report Type: Spontaneous
  Country: JP (occurrence: JP)
  Receive Date: 20201126
  Receipt Date: 20210402
  Transmission Date: 20210717
  Serious: Yes (Hospitalization, Other)
  Sender: FDA-Public Use
  Company Number: JP-009507513-2011JPN014223

PATIENT
  Age: 71 Year
  Sex: Male
  Weight: 51.6 kg

DRUGS (17)
  1. ABRAXANE [Concomitant]
     Active Substance: PACLITAXEL
     Indication: PANCREATIC CARCINOMA
     Dosage: UNK
     Route: 041
     Dates: start: 20201111
  2. CALBLOCK [Concomitant]
     Active Substance: AZELNIDIPINE
     Dosage: 16 MG, EVERYDAY
     Route: 048
     Dates: start: 20201026, end: 20201118
  3. LIPACREON [Concomitant]
     Active Substance: PANCRELIPASE
     Dosage: 150 MG, Q8H
     Route: 048
     Dates: start: 20201110
  4. GEMCITABINE. [Concomitant]
     Active Substance: GEMCITABINE
     Indication: PANCREATIC CARCINOMA
     Dosage: UNK
     Route: 041
     Dates: start: 20201111
  5. OLMESARTAN MEDOXOMIL. [Concomitant]
     Active Substance: OLMESARTAN MEDOXOMIL
     Dosage: 20 MG, EVERYDAY
     Route: 048
     Dates: start: 20201026, end: 20201118
  6. ALOXI [Concomitant]
     Active Substance: PALONOSETRON HYDROCHLORIDE
     Dosage: UNK
     Route: 041
  7. DEXART [Concomitant]
     Active Substance: DEXAMETHASONE SODIUM PHOSPHATE
     Dosage: UNK
     Route: 041
  8. ABRAXANE [Concomitant]
     Active Substance: PACLITAXEL
     Dosage: UNK
  9. SUREPOST [Concomitant]
     Active Substance: REPAGLINIDE
     Dosage: 0.5 MG, Q8H
     Route: 048
     Dates: start: 20201113, end: 20201118
  10. CARVEDILOL. [Concomitant]
     Active Substance: CARVEDILOL
     Dosage: 10 MG, EVERYDAY
     Route: 048
     Dates: start: 20201026, end: 20201118
  11. FOSAPREPITANT DIMEGLUMINE. [Suspect]
     Active Substance: FOSAPREPITANT DIMEGLUMINE
     Indication: PROPHYLAXIS OF NAUSEA AND VOMITING
     Dosage: 150 MILLIGRAM
     Route: 041
     Dates: start: 20201118, end: 20201118
  12. ALOXI [Concomitant]
     Active Substance: PALONOSETRON HYDROCHLORIDE
     Indication: PANCREATIC CARCINOMA
     Dosage: 0.75 MILLIGRAM
     Route: 041
     Dates: start: 20201118, end: 20201118
  13. GEMCITABINE. [Concomitant]
     Active Substance: GEMCITABINE
     Dosage: UNK
  14. DEXART [Concomitant]
     Active Substance: DEXAMETHASONE SODIUM PHOSPHATE
     Indication: PANCREATIC CARCINOMA
     Dosage: 6.6 MILLIGRAM
     Route: 041
     Dates: start: 20201118, end: 20201118
  15. ABRAXANE [Concomitant]
     Active Substance: PACLITAXEL
     Dosage: 190 MILLIGRAM
     Route: 041
     Dates: start: 20201118, end: 20201118
  16. METGLUCO [Concomitant]
     Active Substance: METFORMIN HYDROCHLORIDE
     Dosage: 250 MG, Q12H
     Dates: start: 20201113, end: 20201118
  17. GEMCITABINE. [Concomitant]
     Active Substance: GEMCITABINE
     Dosage: 1500 MILLIGRAM
     Route: 041
     Dates: start: 20201118, end: 20201118

REACTIONS (5)
  - Depressed level of consciousness [Recovered/Resolved]
  - Ileus paralytic [Recovering/Resolving]
  - Disseminated intravascular coagulation [Recovering/Resolving]
  - Sepsis [Recovering/Resolving]
  - Ammonia decreased [Unknown]

NARRATIVE: CASE EVENT DATE: 20201118
